FAERS Safety Report 8815782 (Version 2)
Quarter: 2012Q4

REPORT INFORMATION
  Report Type: 
  Country: EG (occurrence: EG)
  Receive Date: 20120928
  Receipt Date: 20121005
  Transmission Date: 20130627
  Serious: Yes (Hospitalization)
  Sender: FDA-Public Use
  Company Number: EG-ABBOTT-12P-048-0986723-00

PATIENT
  Age: 50 Year
  Sex: Female

DRUGS (1)
  1. DEPAKINE [Suspect]
     Indication: BIPOLAR DISORDER
     Route: 048
     Dates: start: 20120918

REACTIONS (2)
  - Suicide attempt [Unknown]
  - Confusional state [Unknown]
